FAERS Safety Report 10092402 (Version 1)
Quarter: 2014Q2

REPORT INFORMATION
  Report Type: Spontaneous
  Country: US (occurrence: US)
  Receive Date: 20140421
  Receipt Date: 20140421
  Transmission Date: 20141212
  Serious: No
  Sender: FDA-Public Use
  Company Number: US-SANOFI-AVENTIS-2013SA050098

PATIENT
  Age: 45 Year
  Sex: Female

DRUGS (3)
  1. ALLEGRA [Suspect]
     Indication: HYPERSENSITIVITY
     Route: 065
     Dates: start: 20130513
  2. PRILOSEC [Concomitant]
     Indication: GASTRIC DISORDER
  3. CLARITIN [Concomitant]
     Indication: MULTIPLE ALLERGIES

REACTIONS (4)
  - Nervousness [Recovered/Resolved]
  - Drug intolerance [Recovered/Resolved]
  - Abdominal pain upper [Recovered/Resolved]
  - Sleep disorder [Recovered/Resolved]
